FAERS Safety Report 4666763-5 (Version None)
Quarter: 2005Q2

REPORT INFORMATION
  Report Type: 
  Country: None (occurrence: None)
  Receive Date: 20050513
  Receipt Date: 20050509
  Transmission Date: 20051028
  Serious: Yes (Life-Threatening)
  Sender: FDA-Public Use
  Company Number: 2005-128006-NL

PATIENT
  Age: 70 Year
  Sex: Male

DRUGS (3)
  1. TICE BCG [Suspect]
     Route: 043
     Dates: start: 20050411
  2. AMOXICILLIN [Concomitant]
  3. CIPROFLOXACIN [Concomitant]

REACTIONS (3)
  - ASCITES [None]
  - RENAL FAILURE [None]
  - SEPSIS [None]
